FAERS Safety Report 20664023 (Version 3)
Quarter: 2022Q2

REPORT INFORMATION
  Report Type: Spontaneous
  Country: US (occurrence: US)
  Receive Date: 20220401
  Receipt Date: 20220422
  Transmission Date: 20220720
  Serious: Yes (Hospitalization, Other)
  Sender: FDA-Public Use
  Company Number: US-BIOVITRUM-2022US03949

PATIENT
  Age: 1 Year
  Sex: Male

DRUGS (2)
  1. SYNAGIS [Suspect]
     Active Substance: PALIVIZUMAB
     Indication: Hypoxia
     Route: 030
     Dates: start: 20200408
  2. SYNAGIS [Suspect]
     Active Substance: PALIVIZUMAB
     Dates: start: 20220215

REACTIONS (3)
  - Post procedural sepsis [Unknown]
  - Suture rupture [Unknown]
  - Inappropriate schedule of product administration [Unknown]

NARRATIVE: CASE EVENT DATE: 20220301
